FAERS Safety Report 7093475-3 (Version None)
Quarter: 2010Q4

REPORT INFORMATION
  Report Type: 
  Country: None (occurrence: None)
  Receive Date: 20101110
  Receipt Date: 20101101
  Transmission Date: 20110411
  Serious: Yes (Hospitalization)
  Sender: FDA-Public Use
  Company Number: US-SHIRE-ALL1-2010-05644

PATIENT
  Sex: Female
  Weight: 66.667 kg

DRUGS (14)
  1. FOSRENOL [Suspect]
     Indication: HYPERPHOSPHATAEMIA
     Dosage: 1000 MG, OTHER (BEFORE EACH MEAL)
     Route: 048
     Dates: start: 20090101
  2. ADVAIR DISKUS 100/50 [Concomitant]
     Indication: DYSPNOEA
     Dosage: UNK, 2X/DAY:BID (1 PUFF)
     Route: 055
     Dates: start: 20050101
  3. AVAPRO [Concomitant]
     Indication: HYPERTENSION
     Dosage: 150 MG, AS REQ'D
     Route: 048
  4. BACTROBAN [Concomitant]
     Indication: INFECTION PROPHYLAXIS
     Dosage: UNK, 1X/DAY:QD (THIN LAYER OF CREAM ON PERITONEAL DIALYSIS CATHETER)
     Route: 061
  5. CRESTOR [Concomitant]
     Indication: BLOOD CHOLESTEROL INCREASED
     Dosage: 5 MG, 1X/DAY:QD
     Route: 048
  6. EPOGEN [Concomitant]
     Indication: PROPHYLAXIS
     Dosage: 20000 IU, OTHER (TWICE A WEEK)
     Route: 058
     Dates: start: 20080101
  7. FISH OIL [Concomitant]
     Indication: PRODUCT USED FOR UNKNOWN INDICATION
     Dosage: UNK MG, 1X/DAY:QD
     Route: 048
  8. HUMALOG [Concomitant]
     Indication: TYPE 2 DIABETES MELLITUS
     Dosage: UNK, OTHER (SLIDING SCALE BEFORE MEALS)
     Route: 058
     Dates: start: 19940101
  9. LANTUS                             /01483501/ [Concomitant]
     Indication: TYPE 2 DIABETES MELLITUS
     Dosage: 60 IU, 1X/DAY:QD
     Route: 058
  10. PLAVIX [Concomitant]
     Indication: THROMBOSIS PROPHYLAXIS
     Dosage: 75 MG, 1X/DAY:QD
     Route: 048
     Dates: start: 20050101
  11. PLETAL [Concomitant]
     Indication: PERIPHERAL ARTERIAL OCCLUSIVE DISEASE
     Dosage: 50 MG, 2X/DAY:BID
     Route: 048
     Dates: start: 20050101
  12. TOPROL-XL [Concomitant]
     Indication: PRODUCT USED FOR UNKNOWN INDICATION
     Dosage: 50 MG, AS REQ'D
     Route: 048
  13. ZADITOR                            /00495201/ [Concomitant]
     Indication: DRY EYE
     Dosage: UNK, 2X/DAY:BID (2 DROPS EACH EYE)
     Route: 047
     Dates: start: 20080101
  14. ZADITOR                            /00495201/ [Concomitant]
     Indication: EYE PRURITUS

REACTIONS (5)
  - BLOOD PARATHYROID HORMONE ABNORMAL [None]
  - BLOOD POTASSIUM DECREASED [None]
  - DEHYDRATION [None]
  - HYPERTENSION [None]
  - VOMITING [None]
